FAERS Safety Report 6312564-1 (Version None)
Quarter: 2009Q3

REPORT INFORMATION
  Report Type: 
  Country: None (occurrence: None)
  Receive Date: 20090817
  Receipt Date: 20090608
  Transmission Date: 20100115
  Serious: No
  Sender: FDA-Public Use
  Company Number: US-ALLERGAN-0907928US

PATIENT
  Age: 82 Year
  Sex: Male

DRUGS (6)
  1. SANCTURA XR [Suspect]
     Indication: HYPERTONIC BLADDER
     Dosage: UNK, UNKNOWN
     Route: 048
     Dates: start: 20090501
  2. OMEPRAZOLE [Concomitant]
     Dosage: 20 MG, QD
  3. AMLODIPINE BESYLATE [Concomitant]
     Dosage: 20 MG, QD
  4. VALSARTAN [Concomitant]
     Dosage: 80 MG, QD
  5. CITALOPRAM HYDROBROMIDE [Concomitant]
     Dosage: 10 MG, QD
  6. SIMVASTATIN [Concomitant]
     Dosage: 80 MG, QD

REACTIONS (1)
  - DYSURIA [None]
